FAERS Safety Report 5750456-7 (Version None)
Quarter: 2008Q2

REPORT INFORMATION
  Report Type: 
  Country: None (occurrence: None)
  Receive Date: 20080528
  Receipt Date: 20071031
  Transmission Date: 20081010
  Serious: No
  Sender: FDA-Public Use
  Company Number: US-KINGPHARMUSA00001-K200701409

PATIENT

DRUGS (1)
  1. AVINZA [Suspect]
     Indication: BACK PAIN
     Dosage: 120 MG, UNK
     Route: 048
     Dates: start: 20050708, end: 20050711

REACTIONS (3)
  - CHOKING [None]
  - DYSPHONIA [None]
  - THROAT TIGHTNESS [None]
